FAERS Safety Report 4323267-7 (Version None)
Quarter: 2004Q1

REPORT INFORMATION
  Report Type: 
  Country: None (occurrence: None)
  Receive Date: 20040323
  Receipt Date: 20040107
  Transmission Date: 20041129
  Serious: No
  Sender: FDA-Public Use
  Company Number: M04-341-004

PATIENT
  Age: 74 Year
  Sex: Female

DRUGS (3)
  1. VELCADE [Suspect]
     Dates: start: 20031001, end: 20040106
  2. PREDNISONE [Concomitant]
  3. SULINDAC [Concomitant]

REACTIONS (1)
  - INJECTION SITE REACTION [None]
